FAERS Safety Report 22231169 (Version 1)
Quarter: 2023Q2

REPORT INFORMATION
  Report Type: Spontaneous
  Country: US (occurrence: None)
  Receive Date: 20230420
  Receipt Date: 20230420
  Transmission Date: 20230721
  Serious: No
  Sender: FDA-Public Use
  Company Number: US-ROCHE-3239834

PATIENT
  Sex: Female
  Weight: 70.370 kg

DRUGS (4)
  1. XOFLUZA [Suspect]
     Active Substance: BALOXAVIR MARBOXIL
     Indication: Influenza
     Dosage: PATIENT STATES SHE TOOK ONE PILL FOR THE ONE DAY ;ONGOING: NO
     Route: 048
     Dates: start: 20221206, end: 20221206
  2. LISINOPRIL [Concomitant]
     Active Substance: LISINOPRIL
     Indication: Hypertension
     Dosage: PATIENT STATES THEY IT IN THE MORNING WITH BREAKFAST, AND BEGAN IT ABOUT 10 YEARS?AGO ;ONGOING: YES
     Route: 048
  3. METFORMIN [Concomitant]
     Active Substance: METFORMIN HYDROCHLORIDE
     Indication: Type 2 diabetes mellitus
     Dosage: PATIENT STATES THEY TAKE 500 MG IN THE MORNING AND 500 MG AT NIGHT ;ONGOING: YES
     Route: 048
     Dates: start: 2017
  4. LIPITOR [Concomitant]
     Active Substance: ATORVASTATIN CALCIUM
     Indication: Blood cholesterol increased
     Dosage: PATIENT STATES THEY TAKE IT IN THE EVENING WITH DINNER
     Route: 048

REACTIONS (1)
  - Muscular weakness [Not Recovered/Not Resolved]

NARRATIVE: CASE EVENT DATE: 20221207
